FAERS Safety Report 11234450 (Version 1)
Quarter: 2015Q3

REPORT INFORMATION
  Report Type: Spontaneous
  Country: AU (occurrence: AU)
  Receive Date: 20150702
  Receipt Date: 20150702
  Transmission Date: 20151125
  Serious: Yes (Other)
  Sender: FDA-Public Use
  Company Number: AU-AMGEN-AUSSP2015063387

PATIENT
  Age: 47 Year
  Sex: Female

DRUGS (6)
  1. LETROZOLE. [Concomitant]
     Active Substance: LETROZOLE
     Indication: NEOPLASM MALIGNANT
     Dosage: UNK
     Dates: start: 201407
  2. CALTRATE D                         /00944201/ [Concomitant]
     Dosage: UNK UNK, QD
  3. TAMOXIFEN [Concomitant]
     Active Substance: TAMOXIFEN
     Indication: NEOPLASM MALIGNANT
     Dosage: UNK
     Dates: start: 201307
  4. LUCITANIB [Concomitant]
     Indication: NEOPLASM MALIGNANT
     Dosage: 15 MG, UNK
     Dates: start: 201503
  5. XGEVA [Suspect]
     Active Substance: DENOSUMAB
     Indication: BREAST CANCER METASTATIC
     Dosage: 120 MG, Q3WK
     Route: 058
     Dates: start: 201307
  6. CAPECITABINE. [Concomitant]
     Active Substance: CAPECITABINE
     Indication: NEOPLASM MALIGNANT
     Dosage: UNK
     Dates: start: 201409

REACTIONS (5)
  - Hepatic lesion [Unknown]
  - Metastases to liver [Unknown]
  - Brain stem syndrome [Unknown]
  - Scar [Unknown]
  - Metastases to spine [Unknown]

NARRATIVE: CASE EVENT DATE: 20140701
